FAERS Safety Report 5401030-3 (Version None)
Quarter: 2007Q3

REPORT INFORMATION
  Report Type: 
  Country: None (occurrence: None)
  Receive Date: 20070730
  Receipt Date: 20070720
  Transmission Date: 20080115
  Serious: Yes (Hospitalization, Other)
  Sender: FDA-Public Use
  Company Number: DE-ABBOTT-07P-062-0370626-00

PATIENT
  Sex: Male

DRUGS (5)
  1. HUMIRA [Suspect]
     Indication: ANKYLOSING SPONDYLITIS
     Route: 058
     Dates: start: 20060810, end: 20070322
  2. VALORON N [Suspect]
     Indication: DRUG USE FOR UNKNOWN INDICATION
  3. RANTUDIL RETARD [Concomitant]
     Indication: DRUG USE FOR UNKNOWN INDICATION
  4. OMEPRAZOLE [Concomitant]
     Indication: DRUG USE FOR UNKNOWN INDICATION
  5. SULFASALAZINE [Concomitant]
     Indication: DRUG USE FOR UNKNOWN INDICATION

REACTIONS (18)
  - ANAEMIA [None]
  - ANOREXIA [None]
  - ASTHENIA [None]
  - BLOOD LACTATE DEHYDROGENASE INCREASED [None]
  - BONE PAIN [None]
  - C-REACTIVE PROTEIN INCREASED [None]
  - FATIGUE [None]
  - HAEMOGLOBIN DECREASED [None]
  - HAEMOSIDEROSIS [None]
  - IRON BINDING CAPACITY TOTAL ABNORMAL [None]
  - LABORATORY TEST ABNORMAL [None]
  - LEUKOPENIA [None]
  - MICROCYTIC ANAEMIA [None]
  - MYELOFIBROSIS [None]
  - NAUSEA [None]
  - SPHEROCYTIC ANAEMIA [None]
  - VOMITING [None]
  - WEIGHT DECREASED [None]
